FAERS Safety Report 4575402-3 (Version None)
Quarter: 2005Q1

REPORT INFORMATION
  Report Type: 
  Country: None (occurrence: None)
  Receive Date: 20050128
  Receipt Date: 20050128
  Transmission Date: 20050727
  Serious: Yes (Death)
  Sender: FDA-Public Use
  Company Number: None

PATIENT
  Age: 68 Year
  Sex: Female
  Weight: 61 kg

DRUGS (4)
  1. INTEGRILIN [Suspect]
     Indication: THROMBOLYSIS
     Dosage: 15 ML BOLUS  ; 10ML/HR IV
     Route: 042
     Dates: start: 20041221
  2. ANGIOMAX [Suspect]
     Indication: PROPHYLAXIS
     Dosage: 9ML (450 MG) IV BOLUS
     Route: 040
     Dates: start: 20041221
  3. ANGIOMAX [Suspect]
     Indication: VASCULAR OCCLUSION
     Dosage: 9ML (450 MG) IV BOLUS
     Route: 040
     Dates: start: 20041221
  4. ASPIRIN [Concomitant]

REACTIONS (5)
  - CARDIO-RESPIRATORY ARREST [None]
  - EMBOLISM [None]
  - HYPOTENSION [None]
  - POST PROCEDURAL COMPLICATION [None]
  - RETROPERITONEAL HAEMORRHAGE [None]
